FAERS Safety Report 20340991 (Version 2)
Quarter: 2022Q1

REPORT INFORMATION
  Report Type: Report from Study
  Country: FR (occurrence: FR)
  Receive Date: 20220117
  Receipt Date: 20220314
  Transmission Date: 20220423
  Serious: Yes (Hospitalization)
  Sender: FDA-Public Use
  Company Number: FR-PFIZER INC-202200010870

PATIENT
  Age: 16 Year
  Sex: Male

DRUGS (4)
  1. PREGABALIN [Suspect]
     Active Substance: PREGABALIN
     Indication: Euphoric mood
     Dosage: 700 MG, DAILY
  2. PREGABALIN [Suspect]
     Active Substance: PREGABALIN
     Indication: Anxiolytic therapy
  3. CANNABIS SATIVA SUBSP. INDICA TOP [Concomitant]
     Active Substance: CANNABIS SATIVA SUBSP. INDICA TOP
     Dosage: UNK
  4. TOBACCO LEAF [Concomitant]
     Active Substance: TOBACCO LEAF
     Dosage: UNK

REACTIONS (6)
  - No adverse event [Unknown]
  - No adverse event [Unknown]
  - No adverse event [Unknown]
  - No adverse event [Unknown]
  - No adverse event [Unknown]
  - No adverse event [Unknown]

NARRATIVE: CASE EVENT DATE: 20200101
